FAERS Safety Report 25573427 (Version 2)
Quarter: 2025Q3

REPORT INFORMATION
  Report Type: Spontaneous
  Country: US (occurrence: US)
  Receive Date: 20250717
  Receipt Date: 20250804
  Transmission Date: 20251020
  Serious: Yes (Other)
  Sender: TEVA
  Company Number: US-TEVA-VS-3350192

PATIENT
  Age: 75 Year
  Sex: Female

DRUGS (3)
  1. PREDNISONE [Interacting]
     Active Substance: PREDNISONE
     Indication: Immune-mediated myositis
     Route: 065
  2. OMEPRAZOLE [Interacting]
     Active Substance: OMEPRAZOLE
     Indication: Immune-mediated myositis
     Route: 065
  3. MYCOPHENOLATE MOFETIL [Interacting]
     Active Substance: MYCOPHENOLATE MOFETIL
     Indication: Immune-mediated myositis
     Route: 065

REACTIONS (14)
  - Toxicity to various agents [Recovering/Resolving]
  - Herbal interaction [Unknown]
  - Drug level decreased [Unknown]
  - Cushing^s syndrome [Recovering/Resolving]
  - Drug interaction [Unknown]
  - Skin atrophy [Recovering/Resolving]
  - Alopecia [Recovering/Resolving]
  - Contusion [Recovering/Resolving]
  - Muscular weakness [Recovering/Resolving]
  - Headache [Recovering/Resolving]
  - Heart rate irregular [Recovering/Resolving]
  - Hypertension [Recovering/Resolving]
  - Weight increased [Recovering/Resolving]
  - Lacrimation increased [Recovering/Resolving]
